FAERS Safety Report 10058065 (Version 2)
Quarter: 2014Q2

REPORT INFORMATION
  Report Type: Spontaneous
  Country: US (occurrence: US)
  Receive Date: 20140404
  Receipt Date: 20140506
  Transmission Date: 20141212
  Serious: No
  Sender: FDA-Public Use
  Company Number: US-PFIZER INC-2014089877

PATIENT
  Age: 71 Year
  Sex: Female

DRUGS (15)
  1. PROCARDIA [Suspect]
     Dosage: 90 MG, 1X/DAY
     Route: 048
  2. PROCARDIA XL [Suspect]
     Dosage: 90 MG, 1X/DAY
     Route: 048
  3. EDARBI [Suspect]
     Dosage: 40 MG, 1X/DAY
  4. FENOFIBRATE [Suspect]
     Dosage: UNK
  5. CENTRUM [Concomitant]
     Dosage: UNK, 1X /DAY (0.4 MG-162 MG-18 MG TABLET: 1 DAILY)
  6. PLAVIX [Concomitant]
     Dosage: 75 MG, 1X/DAY
  7. PRAVACHOL [Concomitant]
     Dosage: 80 MG, 1X/DAY
  8. FOLIC ACID [Concomitant]
     Dosage: 400 UG, 1X/DAY
  9. MIRALAX [Concomitant]
     Dosage: 17 G, DAILY (17GRAM/DOSE ORAL POWDER)
     Route: 048
  10. VITAMIN E [Concomitant]
     Dosage: 1 DF, 1X/DAY (400 UNIT TABLET: 1 DAILY)
  11. ZEMPLAR [Concomitant]
     Dosage: 1 UG, ALTERNATE DAY (1 MCG CAPSULE 1 EVERY OTHER DAY)
  12. PREVACID [Concomitant]
     Dosage: 30 MG, 1X/DAY (30 MG CAPSULE DELAYED RELEASE 1 DAILY)
  13. FUROSEMIDE [Concomitant]
     Dosage: 20 MG, 1X/DAY
  14. LOVAZA [Concomitant]
     Dosage: 4 G, DAILY (1 GRAM CAPSULE 4 DAILY)
  15. L-THYROXIN [Concomitant]
     Dosage: 25 UG, 1X/DAY

REACTIONS (8)
  - Blood creatinine increased [Recovered/Resolved]
  - Blood calcium increased [Unknown]
  - Dyspnoea exertional [Unknown]
  - Asthenia [Unknown]
  - Fatigue [Unknown]
  - Haemoptysis [Unknown]
  - Glomerular filtration rate decreased [Unknown]
  - Paraproteinaemia [Unknown]
